FAERS Safety Report 9238257 (Version 1)
Quarter: 2013Q2

REPORT INFORMATION
  Report Type: Spontaneous
  Country: US (occurrence: None)
  Receive Date: 20130415
  Receipt Date: 20130415
  Transmission Date: 20140414
  Serious: Yes (Hospitalization)
  Sender: FDA-Public Use
  Company Number: 2013US001439

PATIENT
  Age: 56 Year
  Sex: Male
  Weight: 164 kg

DRUGS (4)
  1. ICLUSIG [Suspect]
     Indication: CHRONIC MYELOID LEUKAEMIA
     Route: 048
     Dates: start: 20130330, end: 20130401
  2. CITALOPRAM (CITALOPRAM) [Concomitant]
  3. GABAPENITIN (GABAPENTIN) [Concomitant]
  4. OPIODS [Concomitant]

REACTIONS (3)
  - Mastocytosis [None]
  - Shock [None]
  - Hypersensitivity [None]
